FAERS Safety Report 5560763-9 (Version None)
Quarter: 2007Q4

REPORT INFORMATION
  Report Type: 
  Country: None (occurrence: None)
  Receive Date: 20071215
  Receipt Date: 20071115
  Transmission Date: 20080405
  Serious: No
  Sender: FDA-Public Use
  Company Number: US-ABBOTT-07P-163-0425533-00

PATIENT
  Sex: Female
  Weight: 68.1 kg

DRUGS (8)
  1. HUMIRA [Suspect]
     Indication: CROHN'S DISEASE
     Route: 058
     Dates: start: 20071001
  2. HUMIRA [Suspect]
     Route: 058
     Dates: start: 20071001, end: 20071001
  3. HUMIRA [Suspect]
     Route: 058
     Dates: start: 20071001, end: 20071001
  4. SERETIDE [Concomitant]
     Indication: ASTHMA
     Route: 055
  5. CIRRUS [Concomitant]
     Indication: SEASONAL ALLERGY
     Route: 048
  6. ALLERGY SHOTS [Concomitant]
     Indication: HYPERSENSITIVITY
     Route: 058
  7. WARFARIN SODIUM [Concomitant]
     Indication: FACTOR V LEIDEN MUTATION
     Route: 048
  8. BUDESONIDE [Concomitant]
     Indication: DRUG USE FOR UNKNOWN INDICATION

REACTIONS (1)
  - ACCIDENTAL NEEDLE STICK [None]
